FAERS Safety Report 5499624-2 (Version None)
Quarter: 2007Q4

REPORT INFORMATION
  Report Type: 
  Country: None (occurrence: None)
  Receive Date: 20071026
  Receipt Date: 20071011
  Transmission Date: 20080405
  Serious: Yes (Hospitalization)
  Sender: FDA-Public Use
  Company Number: JP-SANOFI-SYNTHELABO-A01200712000

PATIENT
  Age: 0 Year
  Sex: Female
  Weight: 1.676 kg

DRUGS (10)
  1. SUXAMETHONIUM CHLORIDE HYDRATE [Concomitant]
     Indication: INDUCTION OF ANAESTHESIA
     Route: 064
  2. NITROUS OXIDE [Concomitant]
     Indication: MAINTENANCE OF ANAESTHESIA
     Dosage: 3 L/MIN
     Route: 064
  3. OXYGEN [Concomitant]
     Indication: MAINTENANCE OF ANAESTHESIA
     Dosage: 3 L/MIN
     Route: 064
  4. ISOFLURANE [Concomitant]
     Indication: MAINTENANCE OF ANAESTHESIA
     Dosage: 0.5-0.7%
     Route: 064
  5. FENTANYL CITRATE [Concomitant]
     Indication: INDUCTION OF ANAESTHESIA
     Route: 064
  6. THIOPENTAL SODIUM [Concomitant]
     Indication: INDUCTION OF ANAESTHESIA
     Route: 064
  7. CERCINE [Suspect]
     Indication: SEDATION
     Route: 064
  8. PENTAZOCINE LACTATE [Suspect]
     Indication: SEDATION
     Route: 064
  9. VECURONIUM BROMIDE [Concomitant]
     Indication: INDUCTION OF ANAESTHESIA
     Route: 064
  10. VECURONIUM BROMIDE [Concomitant]
     Route: 064

REACTIONS (1)
  - NEONATAL ASPHYXIA [None]
